FAERS Safety Report 10919598 (Version 2)
Quarter: 2015Q2

REPORT INFORMATION
  Report Type: Spontaneous
  Country: US (occurrence: US)
  Receive Date: 20150317
  Receipt Date: 20150526
  Transmission Date: 20150821
  Serious: No
  Sender: FDA-Public Use
  Company Number: US-JNJFOC-20130520318

PATIENT

DRUGS (5)
  1. RITONAVIR. [Interacting]
     Active Substance: RITONAVIR
     Indication: DRUG INTERACTION
     Route: 065
  2. RALTEGRAVIR [Interacting]
     Active Substance: RALTEGRAVIR
     Indication: DRUG INTERACTION
     Route: 065
  3. SOFOSBUVIR [Interacting]
     Active Substance: SOFOSBUVIR
     Indication: DRUG INTERACTION
     Route: 065
  4. RILPIVIRINE [Interacting]
     Active Substance: RILPIVIRINE
     Indication: DRUG INTERACTION
     Route: 065
  5. DARUNAVIR [Suspect]
     Active Substance: DARUNAVIR
     Indication: DRUG INTERACTION
     Route: 065

REACTIONS (1)
  - Drug interaction [Unknown]
